FAERS Safety Report 8261070-6 (Version None)
Quarter: 2012Q2

REPORT INFORMATION
  Report Type: 
  Country: None (occurrence: None)
  Receive Date: 20120405
  Receipt Date: 20120330
  Transmission Date: 20120825
  Serious: Yes (Other)
  Sender: FDA-Public Use
  Company Number: PHEH2006US04086

PATIENT
  Sex: Male

DRUGS (17)
  1. VITAMIN B6 [Concomitant]
  2. AREDIA [Suspect]
  3. ANTIHISTAMINES [Concomitant]
     Indication: SEASONAL ALLERGY
  4. FLONASE [Concomitant]
  5. ZOMETA [Suspect]
     Route: 042
     Dates: start: 20000101, end: 20040803
  6. VITAMIN E [Concomitant]
  7. DECADRON [Concomitant]
     Dosage: 40 MG, UNK
  8. ALPHA LIPOIC ACID [Concomitant]
  9. STEROIDS NOS [Concomitant]
     Dates: start: 20040101, end: 20040101
  10. COUMADIN [Concomitant]
  11. SYNTHROID [Concomitant]
  12. DIOVAN [Concomitant]
  13. TESTIM [Concomitant]
  14. VYTORIN [Concomitant]
  15. LASIX [Concomitant]
  16. THALIDOMIDE [Concomitant]
     Indication: MULTIPLE MYELOMA
     Dosage: 200 MG, QD
  17. VELCADE [Concomitant]
     Indication: MULTIPLE MYELOMA

REACTIONS (31)
  - BONE DISORDER [None]
  - HYPERTENSION [None]
  - PNEUMONIA [None]
  - DYSPNOEA [None]
  - SWELLING [None]
  - ERYTHEMA [None]
  - DENTAL CARIES [None]
  - NEOPLASM MALIGNANT [None]
  - AORTIC ARTERIOSCLEROSIS [None]
  - DISCOMFORT [None]
  - CARDIAC FAILURE CONGESTIVE [None]
  - NEUROPATHY PERIPHERAL [None]
  - STOMATITIS [None]
  - BLADDER CANCER [None]
  - CORONARY ARTERY DISEASE [None]
  - HYPOTHYROIDISM [None]
  - SENSITIVITY OF TEETH [None]
  - PERIODONTAL DISEASE [None]
  - GINGIVAL ULCERATION [None]
  - PAIN [None]
  - TOOTH INFECTION [None]
  - DRY MOUTH [None]
  - OSTEONECROSIS OF JAW [None]
  - MORGANELLA INFECTION [None]
  - COSTOCHONDRITIS [None]
  - ORAL CANDIDIASIS [None]
  - DEAFNESS [None]
  - LEFT ATRIAL DILATATION [None]
  - ATRIAL FIBRILLATION [None]
  - OSTEOMYELITIS [None]
  - MUSCLE INJURY [None]
